FAERS Safety Report 7260971-5 (Version None)
Quarter: 2011Q1

REPORT INFORMATION
  Report Type: 
  Country: None (occurrence: None)
  Receive Date: 20110130
  Receipt Date: 20101119
  Transmission Date: 20110831
  Serious: No
  Sender: FDA-Public Use
  Company Number: US-ABBOTT-10P-163-0687372-00

PATIENT
  Sex: Female
  Weight: 81.72 kg

DRUGS (5)
  1. HUMIRA [Suspect]
     Indication: CROHN'S DISEASE
     Dates: start: 20101006
  2. RITALIN [Concomitant]
     Indication: ATTENTION DEFICIT/HYPERACTIVITY DISORDER
     Route: 048
  3. TOVIAZ [Concomitant]
     Indication: BLADDER DISORDER
     Route: 048
  4. WELLBUTRIN SR [Concomitant]
     Indication: DEPRESSION
     Route: 048
  5. ACIPHEX [Concomitant]
     Indication: ULCER
     Route: 048

REACTIONS (10)
  - FATIGUE [None]
  - ABDOMINAL PAIN [None]
  - FEELING ABNORMAL [None]
  - INJECTION SITE PAIN [None]
  - GAIT DISTURBANCE [None]
  - RHINORRHOEA [None]
  - PYREXIA [None]
  - INJECTION SITE HAEMATOMA [None]
  - RASH [None]
  - SINUS CONGESTION [None]
